FAERS Safety Report 8969509 (Version 1)
Quarter: 2012Q4

REPORT INFORMATION
  Report Type: 
  Country: US (occurrence: US)
  Receive Date: 20121218
  Receipt Date: 20121218
  Transmission Date: 20130627
  Serious: Yes (Other)
  Sender: FDA-Public Use
  Company Number: US-BRISTOL-MYERS SQUIBB COMPANY-16262511

PATIENT
  Age: 59 Year
  Sex: Female
  Weight: 117.91 kg

DRUGS (2)
  1. ABILIFY [Suspect]
     Indication: PSYCHOTIC DISORDER
     Dosage: pt receives aripiprazole 20mg at the time of the report
     Route: 048
     Dates: start: 200804
  2. NORVASC [Concomitant]

REACTIONS (3)
  - Diabetes mellitus [Not Recovered/Not Resolved]
  - Weight increased [Not Recovered/Not Resolved]
  - Dyskinesia [Not Recovered/Not Resolved]
